FAERS Safety Report 22242613 (Version 1)
Quarter: 2023Q2

REPORT INFORMATION
  Report Type: Spontaneous
  Country: US (occurrence: None)
  Receive Date: 20230420
  Receipt Date: 20230420
  Transmission Date: 20230722
  Serious: Yes (Hospitalization)
  Sender: FDA-Public Use
  Company Number: None

PATIENT
  Sex: Male

DRUGS (1)
  1. ENBREL [Suspect]
     Active Substance: ETANERCEPT
     Dosage: 50MG OTHER  SUBCUTNEOUS ?
     Route: 058

REACTIONS (4)
  - Blood creatinine increased [None]
  - Blood urea decreased [None]
  - Glomerular filtration rate decreased [None]
  - Norovirus infection [None]
